FAERS Safety Report 5445698-4 (Version None)
Quarter: 2007Q3

REPORT INFORMATION
  Report Type: 
  Country: None (occurrence: None)
  Receive Date: 20070904
  Receipt Date: 20070828
  Transmission Date: 20080115
  Serious: Yes (Hospitalization)
  Sender: FDA-Public Use
  Company Number: 2007SP016991

PATIENT
  Age: 70 Year
  Sex: Male
  Weight: 75.3 kg

DRUGS (13)
  1. TEMOZOLOMIDE [Suspect]
     Indication: GLIOBLASTOMA MULTIFORME
     Dosage: PO; 400 MG; QD; PO
     Route: 048
     Dates: start: 20070817, end: 20070820
  2. TEMOZOLOMIDE [Suspect]
     Indication: GLIOBLASTOMA MULTIFORME
     Dosage: PO; 400 MG; QD; PO
     Route: 048
     Dates: start: 20070205
  3. ZOCOR [Concomitant]
  4. ASPIRIN [Concomitant]
  5. FLOMAX [Concomitant]
  6. LISINOPRIL [Concomitant]
  7. GLYBURIDE [Concomitant]
  8. GLUCOPHAGE [Concomitant]
  9. MULTI-VITAMIN [Concomitant]
  10. ZOFRAN [Concomitant]
  11. LORAZEPAM [Concomitant]
  12. VICODIN [Concomitant]
  13. COLACE [Concomitant]

REACTIONS (2)
  - INTERNATIONAL NORMALISED RATIO INCREASED [None]
  - PULMONARY EMBOLISM [None]
